FAERS Safety Report 13746702 (Version 2)
Quarter: 2017Q3

REPORT INFORMATION
  Report Type: Spontaneous
  Country: JP (occurrence: JP)
  Receive Date: 20170712
  Receipt Date: 20170808
  Transmission Date: 20171127
  Serious: Yes (Hospitalization)
  Sender: FDA-Public Use
  Company Number: JP-SA-2017SA123524

PATIENT
  Age: 79 Year
  Sex: Female

DRUGS (2)
  1. GLIBENCLAMIDE [Suspect]
     Active Substance: GLYBURIDE
     Route: 065
  2. TENELIGLIPTIN [Suspect]
     Active Substance: TENELIGLIPTIN
     Indication: DIABETES MELLITUS
     Route: 065

REACTIONS (5)
  - Hypoglycaemic encephalopathy [Unknown]
  - Altered state of consciousness [Unknown]
  - Unresponsive to stimuli [Unknown]
  - Extensor plantar response [Unknown]
  - Medication error [Unknown]
